FAERS Safety Report 16354292 (Version 2)
Quarter: 2020Q3

REPORT INFORMATION
  Report Type: Report from Study
  Country: US (occurrence: US)
  Receive Date: 20190524
  Receipt Date: 20200706
  Transmission Date: 20201102
  Serious: No
  Sender: FDA-Public Use
  Company Number: PHEH2019US021987

PATIENT
  Sex: Female

DRUGS (3)
  1. MAYZENT [Suspect]
     Active Substance: SIPONIMOD
     Indication: MULTIPLE SCLEROSIS
     Route: 048
     Dates: start: 20190619
  2. GILENYA [Suspect]
     Active Substance: FINGOLIMOD HYDROCHLORIDE
     Dosage: 0.5 MG
     Route: 048
  3. GILENYA [Suspect]
     Active Substance: FINGOLIMOD HYDROCHLORIDE
     Indication: MULTIPLE SCLEROSIS
     Dosage: 0.5 MG, QD
     Route: 048

REACTIONS (1)
  - Peripheral swelling [Recovered/Resolved]
